FAERS Safety Report 6963574-2 (Version None)
Quarter: 2010Q3

REPORT INFORMATION
  Report Type: 
  Country: None (occurrence: None)
  Receive Date: 20100902
  Receipt Date: 20100827
  Transmission Date: 20110219
  Serious: Yes (Hospitalization)
  Sender: FDA-Public Use
  Company Number: JP-BAYER-201014048BYL

PATIENT
  Age: 68 Year
  Sex: Female
  Weight: 37 kg

DRUGS (13)
  1. AVELOX [Suspect]
     Indication: PRODUCT USED FOR UNKNOWN INDICATION
     Dosage: TOTAL DAILY DOSE: 400 MG  UNIT DOSE: 400 MG
     Route: 048
     Dates: start: 20100426, end: 20100509
  2. CLARITHROMYCIN [Suspect]
     Indication: PRODUCT USED FOR UNKNOWN INDICATION
     Dosage: UNIT DOSE: 200 MG
     Route: 048
     Dates: start: 20100421, end: 20100510
  3. NAPA [Concomitant]
     Dosage: TOTAL DAILY DOSE: 0.4 G
     Route: 048
  4. C CYSTEN [Concomitant]
     Dosage: TOTAL DAILY DOSE: 1.5 G  UNIT DOSE: 50 %
     Route: 048
  5. ENTERONON R [Concomitant]
     Dosage: TOTAL DAILY DOSE: 1 G
     Route: 048
  6. THEO-DUR [Concomitant]
     Dosage: TOTAL DAILY DOSE: 0.2 G  UNIT DOSE: 20 %
     Route: 048
  7. TALION [Concomitant]
     Dosage: TOTAL DAILY DOSE: 20 MG  UNIT DOSE: 10 MG
     Route: 048
  8. ASPIRIN [Concomitant]
     Dosage: UNIT DOSE: 100 MG
     Route: 048
     Dates: start: 20100421, end: 20100510
  9. GASLON N [Concomitant]
     Dosage: UNIT DOSE: 2 MG
     Route: 048
     Dates: start: 20100421, end: 20100510
  10. SOLMIRAN [Concomitant]
     Dosage: UNIT DOSE: 600 MG
     Route: 048
     Dates: start: 20100421, end: 20100510
  11. MUCOSAL-L [Concomitant]
     Dosage: UNIT DOSE: 45 MG
     Route: 048
     Dates: start: 20100421, end: 20100510
  12. ONEALFA [Concomitant]
     Dosage: UNIT DOSE: 0.5 ?G
     Route: 048
     Dates: start: 20100421, end: 20100510
  13. EVISTA [Concomitant]
     Dosage: UNIT DOSE: 60 MG
     Route: 048
     Dates: start: 20100421, end: 20100510

REACTIONS (2)
  - AGRANULOCYTOSIS [None]
  - DRUG ERUPTION [None]
